FAERS Safety Report 9208861 (Version 1)
Quarter: 2013Q1

REPORT INFORMATION
  Report Type: Spontaneous
  Country: US (occurrence: None)
  Receive Date: 20120817
  Receipt Date: 20120817
  Transmission Date: 20140127
  Serious: Yes (Hospitalization, Other)
  Sender: FDA-Public Use
  Company Number: ADR-2012-00695

PATIENT
  Sex: Male

DRUGS (2)
  1. BACLOFEN INTRATHECAL(BACLOFEN INJECTION) [Suspect]
     Indication: POST LAMINECTOMY SYNDROME
  2. BACLOFEN INTRATHECAL(BACLOFEN INJECTION) [Suspect]
     Indication: PAIN

REACTIONS (4)
  - Overdose [None]
  - Medical device discomfort [None]
  - Vomiting [None]
  - Malaise [None]
